FAERS Safety Report 4295198-2 (Version None)
Quarter: 2004Q1

REPORT INFORMATION
  Report Type: 
  Country: None (occurrence: None)
  Receive Date: 20040216
  Receipt Date: 20040209
  Transmission Date: 20041129
  Serious: Yes (Life-Threatening)
  Sender: FDA-Public Use
  Company Number: PHFR2004GB00928

PATIENT
  Age: 59 Year
  Sex: Female
  Weight: 70 kg

DRUGS (3)
  1. DICLOFENAC [Suspect]
     Indication: SPONDYLOSIS
     Dosage: 50MG TDS INTERMITTENT
     Route: 048
     Dates: start: 20020918, end: 20030412
  2. TAMOXIFEN [Concomitant]
     Indication: BREAST CANCER
     Dosage: 20 MG, QD
     Route: 048
     Dates: start: 19940512
  3. STEROIDS NOS [Concomitant]
     Indication: OEDEMA
     Dosage: UNK, UNK
     Route: 048

REACTIONS (2)
  - SWELLING FACE [None]
  - SWOLLEN TONGUE [None]
